FAERS Safety Report 6418657-2 (Version None)
Quarter: 2009Q4

REPORT INFORMATION
  Report Type: 
  Country: None (occurrence: None)
  Receive Date: 20091028
  Receipt Date: 20091021
  Transmission Date: 20100525
  Serious: Yes (Hospitalization)
  Sender: FDA-Public Use
  Company Number: FR-MERCK-0907FRA00043

PATIENT
  Age: 49 Year
  Sex: Male

DRUGS (12)
  1. JANUVIA [Suspect]
     Indication: TYPE 2 DIABETES MELLITUS
     Route: 048
     Dates: end: 20090614
  2. PREGABALIN [Suspect]
     Route: 048
     Dates: end: 20090614
  3. CYAMEMAZINE [Suspect]
     Route: 048
     Dates: end: 20090614
  4. AMIODARONE HYDROCHLORIDE [Concomitant]
     Route: 048
     Dates: end: 20090619
  5. PANTOPRAZOLE SODIUM [Concomitant]
     Indication: PROPHYLAXIS AGAINST GASTROINTESTINAL ULCER
     Route: 048
  6. ATORVASTATIN CALCIUM [Concomitant]
     Route: 048
  7. GLIMEPIRIDE [Concomitant]
     Indication: TYPE 2 DIABETES MELLITUS
     Route: 048
  8. METFORMIN [Concomitant]
     Indication: TYPE 2 DIABETES MELLITUS
     Route: 048
  9. MEPROBAMATE [Concomitant]
     Route: 048
  10. CLONAZEPAM [Concomitant]
     Route: 048
  11. PANCREATIN [Concomitant]
     Route: 048
  12. ZOPICLONE [Concomitant]
     Route: 048

REACTIONS (3)
  - CARDIAC FAILURE [None]
  - HYPONATRAEMIA [None]
  - PULMONARY OEDEMA [None]
